FAERS Safety Report 20457846 (Version 2)
Quarter: 2022Q1

REPORT INFORMATION
  Report Type: Report from Study
  Country: US (occurrence: US)
  Receive Date: 20220210
  Receipt Date: 20220225
  Transmission Date: 20220423
  Serious: Yes (Death)
  Sender: FDA-Public Use
  Company Number: US-TEVA-2021-US-1895786

PATIENT

DRUGS (1)
  1. METHOTREXATE [Suspect]
     Active Substance: METHOTREXATE
     Indication: Product used for unknown indication
     Dosage: 15 MILLIGRAM DAILY; ONCE DAILY FOR 1 WEEK
     Route: 048

REACTIONS (2)
  - Toxicity to various agents [Fatal]
  - Inappropriate schedule of product administration [Fatal]
